FAERS Safety Report 5228946-5 (Version None)
Quarter: 2007Q1

REPORT INFORMATION
  Report Type: 
  Country: None (occurrence: None)
  Receive Date: 20070131
  Receipt Date: 20070116
  Transmission Date: 20070707
  Serious: Yes (Other)
  Sender: FDA-Public Use
  Company Number: 2007S1000481

PATIENT
  Age: 73 Year
  Sex: Female

DRUGS (9)
  1. INSULIN GLARGINE [Suspect]
     Indication: DIABETES MELLITUS NON-INSULIN-DEPENDENT
     Dosage: 15 IU; AT BEDTIME; SUBCUTANEOUS
     Route: 058
     Dates: start: 20061127
  2. OPTICLIK [Suspect]
     Dates: start: 20061127
  3. SOTALOL HYDROCHLORIDE TABLETS (80 MG) [Suspect]
     Indication: CARDIAC DISORDER
     Dosage: 80 MG; TWICE A DAY; ORAL
     Route: 048
     Dates: start: 20061106
  4. TRIAMTERENE AND HYDROCHLOROTHIAZIDE [Concomitant]
  5. LOSARTAN POTASSIUM [Concomitant]
  6. AMITRIPTYLINE HYDROCHLORIDE [Concomitant]
  7. WARFARIN SODIUM [Concomitant]
  8. ALPRAZOLAM [Concomitant]
  9. INSULIN ASPART [Concomitant]

REACTIONS (3)
  - BLOOD GLUCOSE DECREASED [None]
  - HYPOGLYCAEMIA [None]
  - NAUSEA [None]
